FAERS Safety Report 9956318 (Version 1)
Quarter: 2014Q1

REPORT INFORMATION
  Report Type: Spontaneous
  Country: TR (occurrence: TR)
  Receive Date: 20140304
  Receipt Date: 20140304
  Transmission Date: 20141002
  Serious: Yes (Life-Threatening)
  Sender: FDA-Public Use
  Company Number: TR-ABBVIE-14P-161-1209067-00

PATIENT
  Sex: 0

DRUGS (2)
  1. KREON [Suspect]
     Indication: SUICIDE ATTEMPT
     Route: 048
     Dates: start: 20131025, end: 20131025
  2. ARVELES [Suspect]
     Indication: SUICIDE ATTEMPT
     Route: 048
     Dates: start: 20131025, end: 20131025

REACTIONS (1)
  - Suicide attempt [Recovered/Resolved]
